FAERS Safety Report 20681031 (Version 1)
Quarter: 2022Q2

REPORT INFORMATION
  Report Type: Spontaneous
  Country: IT (occurrence: IT)
  Receive Date: 20220406
  Receipt Date: 20220406
  Transmission Date: 20220721
  Serious: Yes (Other)
  Sender: FDA-Public Use
  Company Number: IT-MYLANLABS-2022M1022931

PATIENT
  Age: 75 Year
  Sex: Female

DRUGS (4)
  1. TIMOLOL [Suspect]
     Active Substance: TIMOLOL
     Indication: Glaucoma
     Dosage: UNK
     Route: 031
  2. SIMVASTATIN [Suspect]
     Active Substance: SIMVASTATIN
     Indication: Hypercholesterolaemia
     Dosage: 10 MILLIGRAM, QD (ONCE A DAY)
     Route: 048
  3. LISINOPRIL [Suspect]
     Active Substance: LISINOPRIL
     Indication: Hypertension
     Dosage: 20 MILLIGRAM, QD (ONCE A DAY)
     Route: 048
  4. APIXABAN [Concomitant]
     Active Substance: APIXABAN
     Indication: Product used for unknown indication
     Dosage: 10 MILLIGRAM, QD (ONCE A DAY)

REACTIONS (1)
  - Embolism [Unknown]
